FAERS Safety Report 17995247 (Version 1)
Quarter: 2020Q3

REPORT INFORMATION
  Report Type: Spontaneous
  Country: PT (occurrence: PT)
  Receive Date: 20200708
  Receipt Date: 20200708
  Transmission Date: 20201103
  Serious: Yes (Hospitalization, Other)
  Sender: FDA-Public Use
  Company Number: PT-MYLANLABS-2017M1035555

PATIENT
  Age: 86 Year
  Sex: Female

DRUGS (5)
  1. ACETYLSALICYLIC ACID [Suspect]
     Active Substance: ASPIRIN
     Indication: PRODUCT USED FOR UNKNOWN INDICATION
     Dosage: 500.0MG UNKNOWN
  2. OMEPRAZOLE. [Suspect]
     Active Substance: OMEPRAZOLE
     Indication: PRODUCT USED FOR UNKNOWN INDICATION
     Dosage: UNK
     Route: 048
  3. SELEGILINE [Suspect]
     Active Substance: SELEGILINE
     Indication: PRODUCT USED FOR UNKNOWN INDICATION
     Dosage: UNK
  4. MELPERONE [Suspect]
     Active Substance: MELPERONE
     Indication: PRODUCT USED FOR UNKNOWN INDICATION
     Dosage: UNK
  5. BIPERIDEN [Suspect]
     Active Substance: BIPERIDEN
     Indication: PRODUCT USED FOR UNKNOWN INDICATION
     Dosage: UNK

REACTIONS (13)
  - Oesophageal ulcer haemorrhage [Unknown]
  - Necrotising oesophagitis [Recovering/Resolving]
  - Drug ineffective [Unknown]
  - Acute kidney injury [Unknown]
  - C-reactive protein increased [Unknown]
  - Hyperglycaemia [Unknown]
  - Leukocytosis [Unknown]
  - Off label use [Unknown]
  - Gastrointestinal haemorrhage [Recovering/Resolving]
  - Normocytic anaemia [Unknown]
  - Dehydration [Unknown]
  - Oesophageal ulcer [Unknown]
  - Abdominal pain upper [Recovered/Resolved]
